FAERS Safety Report 5014779-1 (Version None)
Quarter: 2006Q2

REPORT INFORMATION
  Report Type: 
  Country: None (occurrence: None)
  Receive Date: 20060531
  Receipt Date: 20060524
  Transmission Date: 20061013
  Serious: Yes (Hospitalization, Other)
  Sender: FDA-Public Use
  Company Number: JP-AVENTIS-200611621JP

PATIENT
  Age: 41 Year
  Sex: Male
  Weight: 50 kg

DRUGS (3)
  1. LANTUS [Suspect]
     Indication: DIABETES MELLITUS NON-INSULIN-DEPENDENT
     Route: 058
     Dates: start: 20031201
  2. LANTUS [Suspect]
  3. VOGLIBOSE [Concomitant]
     Route: 048

REACTIONS (4)
  - HEPATIC ENZYME INCREASED [None]
  - HEPATOMEGALY [None]
  - HYPOGLYCAEMIC COMA [None]
  - LOSS OF CONSCIOUSNESS [None]
